FAERS Safety Report 14922643 (Version 1)
Quarter: 2018Q2

REPORT INFORMATION
  Report Type: Spontaneous
  Country: US (occurrence: US)
  Receive Date: 20180503
  Receipt Date: 20180503
  Transmission Date: 20180711
  Serious: Yes (Hospitalization)
  Sender: FDA-Public Use
  Company Number: None

PATIENT
  Age: 27 Year
  Sex: Female

DRUGS (1)
  1. TUBERSOL [Suspect]
     Active Substance: TUBERCULIN PURIFIED PROTEIN DERIVATIVE
     Indication: TUBERCULIN TEST
     Route: 023

REACTIONS (8)
  - Anaphylactic reaction [None]
  - Dysgeusia [None]
  - Rash [None]
  - Dyspnoea [None]
  - Flushing [None]
  - Urticaria [None]
  - Dysphagia [None]
  - Oropharyngeal pain [None]

NARRATIVE: CASE EVENT DATE: 20180430
